FAERS Safety Report 25189617 (Version 4)
Quarter: 2025Q2

REPORT INFORMATION
  Report Type: Report from Study
  Country: JP (occurrence: JP)
  Receive Date: 20250411
  Receipt Date: 20250620
  Transmission Date: 20250717
  Serious: Yes (Death, Hospitalization, Other)
  Sender: GILEAD
  Company Number: JP-GILEAD-2025-0709813

PATIENT
  Age: 75 Year
  Sex: Male

DRUGS (3)
  1. REMDESIVIR [Suspect]
     Active Substance: REMDESIVIR
     Indication: COVID-19
     Route: 065
     Dates: start: 20220720, end: 20220729
  2. SOTROVIMAB [Concomitant]
     Active Substance: SOTROVIMAB
     Indication: COVID-19
     Dates: start: 20220720, end: 20220720
  3. PREDNISOLONE [Concomitant]
     Active Substance: PREDNISOLONE

REACTIONS (6)
  - Cytomegalovirus enterocolitis [Unknown]
  - Sepsis [Fatal]
  - Pneumonia bacterial [Unknown]
  - Gastrointestinal perforation [Unknown]
  - Drug resistance [Unknown]
  - Drug resistance mutation [Unknown]

NARRATIVE: CASE EVENT DATE: 20220101
